FAERS Safety Report 6767927-7 (Version None)
Quarter: 2010Q2

REPORT INFORMATION
  Report Type: 
  Country: None (occurrence: None)
  Receive Date: 20100614
  Receipt Date: 20100603
  Transmission Date: 20101027
  Serious: Yes (Hospitalization)
  Sender: FDA-Public Use
  Company Number: GXKR2010AT06217

PATIENT
  Age: 43 Year
  Sex: Male

DRUGS (3)
  1. CLOZAPINE [Suspect]
     Indication: BIPOLAR DISORDER
     Dosage: 300-400 MG / DAY
  2. LAMOTRIGINE [Interacting]
     Indication: DEPRESSION
     Dosage: 50 MG / DAY
  3. LORAZEPAM [Concomitant]
     Dosage: 2-3.5 MG / DAY

REACTIONS (6)
  - ANTIPSYCHOTIC DRUG LEVEL INCREASED [None]
  - BODY TEMPERATURE INCREASED [None]
  - DISORIENTATION [None]
  - DIZZINESS [None]
  - DRUG INTERACTION [None]
  - RASH [None]
